FAERS Safety Report 5356915-3 (Version None)
Quarter: 2007Q2

REPORT INFORMATION
  Report Type: 
  Country: None (occurrence: None)
  Receive Date: 20070614
  Receipt Date: 20070312
  Transmission Date: 20071010
  Serious: No
  Sender: FDA-Public Use
  Company Number: US-ASTRAZENECA-2007UW04727

PATIENT
  Age: 63 Year
  Sex: Female

DRUGS (2)
  1. ATACAND HCT [Suspect]
     Dosage: 32/12.5 MG
     Route: 048
     Dates: start: 20060801
  2. ASPIRIN [Concomitant]

REACTIONS (2)
  - THYROID FUNCTION TEST ABNORMAL [None]
  - WEIGHT INCREASED [None]
